FAERS Safety Report 23093543 (Version 1)
Quarter: 2023Q4

REPORT INFORMATION
  Report Type: Spontaneous
  Country: AU (occurrence: AU)
  Receive Date: 20231023
  Receipt Date: 20231023
  Transmission Date: 20240110
  Serious: Yes (Life-Threatening, Hospitalization, Other)
  Sender: FDA-Public Use
  Company Number: None

PATIENT
  Age: 7 Decade
  Sex: Male

DRUGS (4)
  1. PANTOPRAZOLE SODIUM [Suspect]
     Active Substance: PANTOPRAZOLE SODIUM
     Indication: Product used for unknown indication
     Dosage: 40 MG, ONCE PER DAY (AT NIGHT)
     Route: 065
  2. ROSUVASTATIN [Concomitant]
     Active Substance: ROSUVASTATIN
     Indication: Product used for unknown indication
     Dosage: 20 MG, ONCE PER DAY (AT NIGHT)
     Route: 065
  3. METOPROLOL [Concomitant]
     Active Substance: METOPROLOL
     Indication: Product used for unknown indication
     Dosage: 25 MG, 2 TIMES PER DAY
     Route: 065
  4. AMITRIPTYLINE [Concomitant]
     Active Substance: AMITRIPTYLINE
     Indication: Product used for unknown indication
     Dosage: 10 MG, ONCE PER DAY (AT NIGHT)

REACTIONS (6)
  - Deep vein thrombosis [Recovered/Resolved]
  - Compartment syndrome [Recovered/Resolved]
  - Infective aneurysm [Recovered/Resolved]
  - Acute myocardial infarction [Recovered/Resolved]
  - Salmonella bacteraemia [Recovered/Resolved]
  - Peripheral artery aneurysm rupture [Recovered/Resolved]
